FAERS Safety Report 20417719 (Version 1)
Quarter: 2022Q1

REPORT INFORMATION
  Report Type: Spontaneous
  Country: US (occurrence: None)
  Receive Date: 20220202
  Receipt Date: 20220202
  Transmission Date: 20220423
  Serious: Yes (Life-Threatening, Hospitalization, Other)
  Sender: FDA-Public Use
  Company Number: None

PATIENT
  Age: 39 Year
  Sex: Female
  Weight: 86.6 kg

DRUGS (1)
  1. PRADAXA [Suspect]
     Active Substance: DABIGATRAN ETEXILATE MESYLATE
     Indication: Pulmonary embolism
     Dosage: FREQUENCY : TWICE A DAY;?
     Route: 048
     Dates: start: 20211209, end: 20220116

REACTIONS (20)
  - Dyspnoea [None]
  - Cough [None]
  - Rash [None]
  - Skin exfoliation [None]
  - Malaise [None]
  - Rash [None]
  - Malaise [None]
  - Diarrhoea [None]
  - Pulmonary embolism [None]
  - Antiphospholipid syndrome [None]
  - Jaundice [None]
  - Stevens-Johnson syndrome [None]
  - Liver function test abnormal [None]
  - Gallbladder enlargement [None]
  - Body fat disorder [None]
  - Histone antibody positive [None]
  - Drug-induced liver injury [None]
  - Acute kidney injury [None]
  - International normalised ratio increased [None]
  - Blood bilirubin increased [None]

NARRATIVE: CASE EVENT DATE: 20220116
